FAERS Safety Report 14924847 (Version 2)
Quarter: 2018Q2

REPORT INFORMATION
  Report Type: Report from Study
  Country: KR (occurrence: KR)
  Receive Date: 20180522
  Receipt Date: 20180523
  Transmission Date: 20180711
  Serious: Yes (Other)
  Sender: FDA-Public Use
  Company Number: KR-PFIZER INC-2018203600

PATIENT
  Age: 40 Month
  Sex: Male

DRUGS (6)
  1. CISPLATIN. [Suspect]
     Active Substance: CISPLATIN
     Indication: EPENDYMOMA MALIGNANT
     Dosage: 90 MG/M2, CYCLIC (DAY 0)
  2. IFOSFAMIDE. [Suspect]
     Active Substance: IFOSFAMIDE
     Indication: EPENDYMOMA MALIGNANT
     Dosage: 1500 MG/M2, CYCLIC (DAYS 0-4)
  3. ETOPOSIDE. [Suspect]
     Active Substance: ETOPOSIDE
     Indication: EPENDYMOMA MALIGNANT
     Dosage: 75 MG/M2, CYCLIC (DAYS 0-2) AND (DAYS 0-4)
  4. CARBOPLATIN. [Suspect]
     Active Substance: CARBOPLATIN
     Indication: EPENDYMOMA MALIGNANT
     Dosage: 300 MG/M2, CYCLIC (DAYS 0 AND 1)
  5. CYCLOPHOSPHAMIDE. [Suspect]
     Active Substance: CYCLOPHOSPHAMIDE
     Indication: EPENDYMOMA MALIGNANT
     Dosage: 1500 MG/M2, CYCLIC (DAYS 1 AND 2)
  6. VINCRISTINE SULFATE. [Suspect]
     Active Substance: VINCRISTINE SULFATE
     Indication: EPENDYMOMA MALIGNANT
     Dosage: 1.5 MG/M2, CYCLIC (DAYS 0 AND 7)

REACTIONS (1)
  - Febrile neutropenia [Unknown]
